FAERS Safety Report 19997133 (Version 1)
Quarter: 2021Q4

REPORT INFORMATION
  Report Type: Spontaneous
  Country: US (occurrence: US)
  Receive Date: 20211026
  Receipt Date: 20211026
  Transmission Date: 20220303
  Serious: No
  Sender: FDA-Public Use
  Company Number: 2021A769335

PATIENT
  Age: 941 Month
  Sex: Male
  Weight: 79.4 kg

DRUGS (2)
  1. BREZTRI [Suspect]
     Active Substance: BUDESONIDE\FORMOTEROL\GLYCOPYRROLATE
     Indication: Chronic obstructive pulmonary disease
     Dosage: 2 PUFFS, TWICE DAILY
     Route: 055
     Dates: start: 2021
  2. BREZTRI [Suspect]
     Active Substance: BUDESONIDE\FORMOTEROL\GLYCOPYRROLATE
     Indication: Asthma
     Dosage: 2 PUFFS, TWICE DAILY
     Route: 055
     Dates: start: 2021

REACTIONS (5)
  - Dyspnoea [Not Recovered/Not Resolved]
  - Drug ineffective [Recovering/Resolving]
  - Intentional device misuse [Recovered/Resolved]
  - Product use issue [Unknown]
  - Device defective [Unknown]

NARRATIVE: CASE EVENT DATE: 20211001
